FAERS Safety Report 6136327-5 (Version None)
Quarter: 2009Q1

REPORT INFORMATION
  Report Type: 
  Country: None (occurrence: None)
  Receive Date: 20090330
  Receipt Date: 20090325
  Transmission Date: 20090719
  Serious: Yes (Hospitalization)
  Sender: FDA-Public Use
  Company Number: JP-BAYER-200910902BYL

PATIENT
  Age: 83 Year
  Sex: Female

DRUGS (2)
  1. ASPIRIN [Suspect]
     Indication: DEEP VEIN THROMBOSIS
     Route: 048
  2. WARFARIN SODIUM [Suspect]
     Indication: DEEP VEIN THROMBOSIS
     Route: 048

REACTIONS (4)
  - ACUTE ABDOMEN [None]
  - GASTROINTESTINAL NECROSIS [None]
  - HAEMORRHAGIC ASCITES [None]
  - MELAENA [None]
